FAERS Safety Report 15180509 (Version 1)
Quarter: 2018Q3

REPORT INFORMATION
  Report Type: Spontaneous
  Country: US (occurrence: US)
  Receive Date: 20180623
  Receipt Date: 20180623
  Transmission Date: 20181010
  Serious: Yes (Life-Threatening, Hospitalization)
  Sender: FDA-Public Use
  Company Number: None

PATIENT
  Age: 40 Year
  Sex: Male
  Weight: 95 kg

DRUGS (4)
  1. BENAZEPRIL 40MG [Concomitant]
  2. GLYXAMBI [Suspect]
     Active Substance: EMPAGLIFLOZIN\LINAGLIPTIN
     Indication: TYPE 2 DIABETES MELLITUS
     Route: 048
     Dates: start: 20180615, end: 20180619
  3. METFORMIN 500MG BID [Concomitant]
  4. AMLODIPINE [Concomitant]
     Active Substance: AMLODIPINE BESYLATE

REACTIONS (9)
  - Condition aggravated [None]
  - Nausea [None]
  - Diabetic ketoacidosis [None]
  - Hyperglycaemia [None]
  - Cholecystitis [None]
  - Acute kidney injury [None]
  - Vomiting [None]
  - Abdominal pain [None]
  - Metabolic acidosis [None]

NARRATIVE: CASE EVENT DATE: 20180620
